FAERS Safety Report 4938455-6 (Version None)
Quarter: 2006Q1

REPORT INFORMATION
  Report Type: 
  Country: None (occurrence: None)
  Receive Date: 20060308
  Receipt Date: 20060308
  Transmission Date: 20060701
  Serious: Yes (Death)
  Sender: FDA-Public Use
  Company Number: None

PATIENT
  Sex: Male
  Weight: 63 kg

DRUGS (2)
  1. THALIDOMIDE THALIDOMIDE) [Suspect]
     Indication: MULTIPLE MYELOMA
     Dosage: 200 MG
     Dates: start: 20051017, end: 20051114
  2. DEXAMETHASONE TAB [Suspect]
     Dosage: 20 MG
     Dates: start: 20051017, end: 20051105

REACTIONS (1)
  - ECONOMIC PROBLEM [None]
